FAERS Safety Report 7082941-2 (Version None)
Quarter: 2010Q4

REPORT INFORMATION
  Report Type: 
  Country: None (occurrence: None)
  Receive Date: 20101104
  Receipt Date: 20101102
  Transmission Date: 20110411
  Serious: Yes (Life-Threatening, Hospitalization)
  Sender: FDA-Public Use
  Company Number: PHEH2009US11391

PATIENT
  Sex: Male

DRUGS (2)
  1. EXJADE [Suspect]
     Indication: SICKLE CELL ANAEMIA
     Dosage: 1000 MG DAILY
     Route: 048
  2. EXJADE [Suspect]
     Dosage: 1000 MG, QD
     Route: 048

REACTIONS (4)
  - CHEST TUBE INSERTION [None]
  - MALAISE [None]
  - PAIN [None]
  - SICKLE CELL ANAEMIA WITH CRISIS [None]
